FAERS Safety Report 16581463 (Version 2)
Quarter: 2019Q3

REPORT INFORMATION
  Report Type: Spontaneous
  Country: US (occurrence: US)
  Receive Date: 20190716
  Receipt Date: 20190726
  Transmission Date: 20191004
  Serious: Yes (Other)
  Sender: FDA-Public Use
  Company Number: US-ALLERGAN-1928107US

PATIENT
  Sex: Female

DRUGS (1)
  1. ATELVIA [Suspect]
     Active Substance: RISEDRONATE SODIUM
     Indication: OSTEOPOROSIS
     Dosage: 35 MG, Q WEEK
     Route: 048

REACTIONS (6)
  - Dyspnoea [Recovered/Resolved]
  - Pain [Recovered/Resolved]
  - Myalgia [Recovered/Resolved]
  - Dysphagia [Recovered/Resolved]
  - Pharyngeal swelling [Recovered/Resolved]
  - Hypersensitivity [Recovered/Resolved]

NARRATIVE: CASE EVENT DATE: 201304
